FAERS Safety Report 7988064-X (Version None)
Quarter: 2011Q4

REPORT INFORMATION
  Report Type: 
  Country: None (occurrence: None)
  Receive Date: 20111216
  Receipt Date: 20110526
  Transmission Date: 20120403
  Serious: Yes (Other)
  Sender: FDA-Public Use
  Company Number: US-BRISTOL-MYERS SQUIBB COMPANY-15782147

PATIENT
  Age: 45 Year
  Sex: Female

DRUGS (3)
  1. ABILIFY [Suspect]
     Indication: BIPOLAR DISORDER
     Dosage: FOR 5-6 YEARS ,DISCONTINUED FOR 30 DAYS
  2. ABILIFY [Suspect]
     Indication: SCHIZOAFFECTIVE DISORDER
     Dosage: FOR 5-6 YEARS ,DISCONTINUED FOR 30 DAYS
  3. HALDOL [Concomitant]

REACTIONS (2)
  - TREMOR [None]
  - TONGUE DISORDER [None]
